FAERS Safety Report 19520961 (Version 1)
Quarter: 2021Q3

REPORT INFORMATION
  Report Type: Spontaneous
  Country: GB (occurrence: GB)
  Receive Date: 20210712
  Receipt Date: 20210712
  Transmission Date: 20211014
  Serious: Yes (Other)
  Sender: FDA-Public Use
  Company Number: GB-JNJFOC-20210713101

PATIENT
  Age: 55 Year
  Sex: Female
  Weight: 99 kg

DRUGS (2)
  1. CANAGLIFLOZIN [Concomitant]
     Active Substance: CANAGLIFLOZIN
     Indication: ILL-DEFINED DISORDER
     Dosage: ONE TABLET AM DAILY
     Route: 048
     Dates: start: 20210616
  2. INVOKANA [Suspect]
     Active Substance: CANAGLIFLOZIN
     Indication: ILL-DEFINED DISORDER
     Route: 048
     Dates: start: 20210623

REACTIONS (2)
  - Fatigue [Recovering/Resolving]
  - Dizziness [Recovering/Resolving]

NARRATIVE: CASE EVENT DATE: 20210623
